FAERS Safety Report 7863257-0 (Version None)
Quarter: 2011Q4

REPORT INFORMATION
  Report Type: 
  Country: None (occurrence: None)
  Receive Date: 20111027
  Receipt Date: 20101201
  Transmission Date: 20120403
  Serious: No
  Sender: FDA-Public Use
  Company Number: US-AMGEN-USASP2010005152

PATIENT
  Age: 64 Year
  Sex: Female

DRUGS (3)
  1. ENBREL [Suspect]
     Dosage: 50 MG, 2 TIMES/WK
     Route: 058
     Dates: start: 20101029
  2. ENBREL [Suspect]
     Dosage: 50 MG, 2 TIMES/WK
     Dates: start: 20101027
  3. ENBREL [Suspect]
     Indication: PSORIASIS
     Dosage: 50 MG, QWK
     Route: 058
     Dates: start: 20101101

REACTIONS (4)
  - ARTHRALGIA [None]
  - BACK PAIN [None]
  - INFLUENZA LIKE ILLNESS [None]
  - MYALGIA [None]
